FAERS Safety Report 6510118-5 (Version None)
Quarter: 2009Q4

REPORT INFORMATION
  Report Type: 
  Country: None (occurrence: None)
  Receive Date: 20091222
  Receipt Date: 20091218
  Transmission Date: 20100525
  Serious: Yes (Other)
  Sender: FDA-Public Use
  Company Number: A0835945A

PATIENT
  Age: 35 Year
  Sex: Female

DRUGS (5)
  1. LAMICTAL [Suspect]
     Dosage: 175MG PER DAY
     Route: 048
  2. LAMOTRIGINE [Suspect]
  3. KLONOPIN [Concomitant]
  4. SEROQUEL [Concomitant]
  5. EFFEXOR XR [Concomitant]

REACTIONS (1)
  - PIGMENTARY GLAUCOMA [None]
